FAERS Safety Report 11228108 (Version 4)
Quarter: 2016Q3

REPORT INFORMATION
  Report Type: Report from Study
  Country: JP (occurrence: JP)
  Receive Date: 20150630
  Receipt Date: 20160831
  Transmission Date: 20161109
  Serious: No
  Sender: FDA-Public Use
  Company Number: JP-ASTELLAS-2015JP004550

PATIENT
  Age: 74 Year
  Sex: Female
  Weight: 50 kg

DRUGS (15)
  1. METGLUCO [Concomitant]
     Active Substance: METFORMIN HYDROCHLORIDE
     Indication: DIABETES MELLITUS
     Route: 048
  2. DIAZEPAM. [Concomitant]
     Active Substance: DIAZEPAM
     Indication: INSOMNIA
     Route: 048
     Dates: end: 20150507
  3. BETANIS [Suspect]
     Active Substance: MIRABEGRON
     Route: 048
     Dates: start: 20150416
  4. GLIMEPIRIDE. [Concomitant]
     Active Substance: GLIMEPIRIDE
     Indication: DIABETES MELLITUS
     Route: 048
     Dates: end: 20150419
  5. SANCOBA [Concomitant]
     Active Substance: CYANOCOBALAMIN
     Indication: CONJUNCTIVITIS
     Dosage: ADEQUATE DOSE
     Route: 047
  6. LIVOSTIN [Concomitant]
     Active Substance: LEVOCABASTINE HYDROCHLORIDE
     Indication: CONJUNCTIVITIS
     Dosage: ADEQUATE DOSE
     Route: 047
  7. BETANIS [Suspect]
     Active Substance: MIRABEGRON
     Indication: HYPERTONIC BLADDER
     Route: 048
     Dates: start: 20141002, end: 20141210
  8. BUP-4 [Suspect]
     Active Substance: PROPIVERINE
     Indication: HYPERTONIC BLADDER
     Dosage: 20 MG, ONCE DAILY, AFTER BREAKFAST
     Route: 048
     Dates: start: 20141225, end: 20150217
  9. BUP-4 [Suspect]
     Active Substance: PROPIVERINE
     Dosage: 20 MG, TWICE DAILY, AFTER BREAKFAST AND DINNER
     Route: 048
     Dates: start: 20150218, end: 20150415
  10. SEIBULE [Concomitant]
     Active Substance: MIGLITOL
     Indication: DIABETES MELLITUS
     Route: 048
     Dates: end: 20150419
  11. GOODMIN [Concomitant]
     Active Substance: BROTIZOLAM
     Indication: INSOMNIA
     Dosage: 0.25 MG, ONCE DAILY
     Route: 048
  12. MEVALOTIN [Concomitant]
     Active Substance: PRAVASTATIN SODIUM
     Indication: HYPERLIPIDAEMIA
     Route: 048
  13. EQUA [Concomitant]
     Active Substance: VILDAGLIPTIN
     Indication: DIABETES MELLITUS
     Route: 048
     Dates: end: 20150419
  14. RINDERON VG [Concomitant]
     Active Substance: BETAMETHASONE VALERATE\GENTAMICIN SULFATE
     Indication: VULVITIS
     Dosage: ADEQUATE DOSE
     Route: 062
     Dates: start: 20150217, end: 20150223
  15. MIRABEGRON [Suspect]
     Active Substance: MIRABEGRON
     Indication: HYPERTONIC BLADDER
     Dosage: 50 MG, ONCE DAILY AFTER BREAKFAST
     Route: 048
     Dates: start: 20141211, end: 20150415

REACTIONS (5)
  - Electrocardiogram QT prolonged [Recovered/Resolved]
  - Electrocardiogram T wave inversion [Recovering/Resolving]
  - Constipation [Recovered/Resolved]
  - Vulvitis [Recovered/Resolved]
  - Dry mouth [Recovered/Resolved]

NARRATIVE: CASE EVENT DATE: 20150214
